FAERS Safety Report 6410750-3 (Version None)
Quarter: 2009Q4

REPORT INFORMATION
  Report Type: 
  Country: None (occurrence: None)
  Receive Date: 20091020
  Receipt Date: 20091020
  Transmission Date: 20100525
  Serious: No
  Sender: FDA-Public Use
  Company Number: None

PATIENT
  Age: 51 Year
  Sex: Female

DRUGS (9)
  1. CELEBREX [Suspect]
     Dates: start: 20080502, end: 20080502
  2. HORSETALL GRASS HERBAL PRODUCT [Suspect]
  3. SEVOFLURANE [Suspect]
  4. SYNTHROID [Concomitant]
  5. PREMARIN [Concomitant]
  6. ASCORBIC ACID [Concomitant]
  7. MULTI-VITAMIN [Concomitant]
  8. KETOPROFEN LIDOCAINE CREAM [Concomitant]
  9. VICODIN [Concomitant]

REACTIONS (5)
  - ABDOMINAL PAIN UPPER [None]
  - HEPATITIS [None]
  - LIVER INJURY [None]
  - PRODUCT SUBSTITUTION ISSUE [None]
  - VOMITING [None]
